FAERS Safety Report 25714874 (Version 1)
Quarter: 2025Q3

REPORT INFORMATION
  Report Type: Spontaneous
  Country: EU (occurrence: EU)
  Receive Date: 20250822
  Receipt Date: 20250822
  Transmission Date: 20251020
  Serious: Yes (Death, Other)
  Sender: STRIDES
  Company Number: EU-STRIDES ARCOLAB LIMITED-2025SP010754

PATIENT
  Age: 22 Year
  Sex: Male

DRUGS (5)
  1. ALPRAZOLAM [Interacting]
     Active Substance: ALPRAZOLAM
     Indication: Panic disorder
     Route: 065
  2. PAROXETINE [Interacting]
     Active Substance: PAROXETINE
     Indication: Major depression
     Route: 065
  3. PAROXETINE [Interacting]
     Active Substance: PAROXETINE
     Indication: Panic disorder
  4. QUETIAPINE [Interacting]
     Active Substance: QUETIAPINE
     Indication: Major depression
     Route: 065
  5. CLOZAPINE [Interacting]
     Active Substance: CLOZAPINE
     Indication: Antipsychotic therapy
     Route: 065

REACTIONS (2)
  - Toxicity to various agents [Fatal]
  - Drug interaction [Fatal]
